FAERS Safety Report 22651247 (Version 1)
Quarter: 2023Q2

REPORT INFORMATION
  Report Type: Spontaneous
  Country: US (occurrence: None)
  Receive Date: 20230627
  Receipt Date: 20230627
  Transmission Date: 20230721
  Serious: Yes (Death, Hospitalization)
  Sender: FDA-Public Use
  Company Number: None

PATIENT
  Age: 88 Year
  Sex: Male

DRUGS (1)
  1. PIRFENIDONE [Suspect]
     Active Substance: PIRFENIDONE
     Indication: Bronchitis chronic
     Dosage: 801MG TID ORAL
     Route: 048
     Dates: start: 20230202, end: 20230531

REACTIONS (7)
  - Drug intolerance [None]
  - Hypoxia [None]
  - Blood creatinine increased [None]
  - Atrial fibrillation [None]
  - Leukocytosis [None]
  - Urinary retention [None]
  - Respiratory acidosis [None]

NARRATIVE: CASE EVENT DATE: 20230613
